FAERS Safety Report 8856198 (Version 1)
Quarter: 2012Q4

REPORT INFORMATION
  Report Type: Spontaneous
  Country: GB (occurrence: None)
  Receive Date: 20121019
  Receipt Date: 20121019
  Transmission Date: 20130627
  Serious: Yes (Other)
  Sender: FDA-Public Use
  Company Number: TUK2012A00274

PATIENT
  Age: 78 Year
  Sex: Female

DRUGS (7)
  1. COMPETACT [Suspect]
     Indication: DIABETES
     Dates: start: 20100824
  2. AVASTIN (BEVACIZUMAB) [Suspect]
     Dosage: total dose of last Avastin infusion 525 mg on 24/Apr/2012 (525 mg)
     Dates: start: 20111216
  3. VERAPAMIL [Concomitant]
  4. LOSARTAN [Concomitant]
  5. EZETIMIBE [Concomitant]
  6. SOLPADOL (CODEINE PHOSPHATE, PARACETAMOL) [Concomitant]
  7. GLICLAZIDE [Concomitant]

REACTIONS (4)
  - Left ventricular dysfunction [None]
  - Dyspnoea exertional [None]
  - Fatigue [None]
  - Ejection fraction decreased [None]
